FAERS Safety Report 4884738-8 (Version None)
Quarter: 2006Q1

REPORT INFORMATION
  Report Type: 
  Country: None (occurrence: None)
  Receive Date: 20060119
  Receipt Date: 20060106
  Transmission Date: 20060701
  Serious: Yes (Other)
  Sender: FDA-Public Use
  Company Number: CA-NOVOPROD-249886

PATIENT
  Age: 83 Year
  Sex: Female

DRUGS (2)
  1. LEVEMIR [Suspect]
     Indication: DIABETES MELLITUS
     Dosage: 42 IU, UNK
     Dates: start: 20051208, end: 20051231
  2. FUROSEMIDE [Concomitant]

REACTIONS (1)
  - RIGHT VENTRICULAR FAILURE [None]
